FAERS Safety Report 8984734 (Version 1)
Quarter: 2012Q4

REPORT INFORMATION
  Report Type: Spontaneous
  Country: US (occurrence: None)
  Receive Date: 20121217
  Receipt Date: 20121217
  Transmission Date: 20130627
  Serious: Yes (Hospitalization, Other)
  Sender: FDA-Public Use
  Company Number: 2012P1066607

PATIENT
  Age: 61 Year
  Sex: Female
  Weight: 102.97 kg

DRUGS (2)
  1. INFUMORPH [Suspect]
     Indication: LOW BACK PAIN
  2. INFUMORPH [Suspect]
     Indication: PAIN

REACTIONS (4)
  - Wound dehiscence [None]
  - Cellulitis [None]
  - Haemoglobin decreased [None]
  - Implant site infection [None]
